FAERS Safety Report 6969600-9 (Version None)
Quarter: 2010Q3

REPORT INFORMATION
  Report Type: 
  Country: None (occurrence: None)
  Receive Date: 20100902
  Receipt Date: 20100827
  Transmission Date: 20110219
  Serious: Yes (Death)
  Sender: FDA-Public Use
  Company Number: 2010US003487

PATIENT
  Age: 47 Year
  Sex: Male

DRUGS (6)
  1. PROGRAF [Suspect]
     Indication: LIVER TRANSPLANT
     Dosage: 3 MG, UID/QD, ORAL
     Route: 048
  2. PROZAC [Concomitant]
  3. LEVOTHYROXINE SODIUM [Concomitant]
  4. PROMETHAZINE [Concomitant]
  5. SENNA (SENNOSIDE A+B) [Concomitant]
  6. MORPHINE [Concomitant]

REACTIONS (1)
  - PNEUMONIA [None]
